FAERS Safety Report 10397255 (Version 2)
Quarter: 2014Q3

REPORT INFORMATION
  Report Type: Spontaneous
  Country: DK (occurrence: FR)
  Receive Date: 20140820
  Receipt Date: 20140910
  Transmission Date: 20150326
  Serious: Yes (Death)
  Sender: FDA-Public Use
  Company Number: FR-FRI-1000069986

PATIENT
  Sex: Female

DRUGS (4)
  1. IMIGRANE [Suspect]
     Active Substance: SUMATRIPTAN SUCCINATE
     Dosage: ONE INTAKE
     Route: 064
  2. NOCERTONE [Suspect]
     Active Substance: OXETORONE
     Dosage: 1 DF
     Route: 064
     Dates: end: 201309
  3. CITALOPRAM [Suspect]
     Active Substance: CITALOPRAM HYDROBROMIDE
     Dosage: 2 DF
     Route: 064
     Dates: end: 201403
  4. ZOMIG [Suspect]
     Active Substance: ZOLMITRIPTAN
     Dosage: ONE INTAKE
     Route: 064

REACTIONS (3)
  - Meningomyelocele [Fatal]
  - Congenital cardiovascular anomaly [Fatal]
  - Foetal exposure during pregnancy [Fatal]

NARRATIVE: CASE EVENT DATE: 201403
